FAERS Safety Report 10216449 (Version 1)
Quarter: 2014Q2

REPORT INFORMATION
  Report Type: Spontaneous
  Country: US (occurrence: None)
  Receive Date: 20140603
  Receipt Date: 20140603
  Transmission Date: 20141212
  Serious: No
  Sender: FDA-Public Use
  Company Number: None

PATIENT
  Age: 21 Year
  Sex: Male
  Weight: 74.84 kg

DRUGS (1)
  1. RISPERDAL, RESPERIDONE [Suspect]
     Indication: BIPOLAR DISORDER
     Dosage: 1 PILL  ONCE AT 7:00 PM  BY MOUTH
     Route: 048
     Dates: start: 20111117, end: 20120427

REACTIONS (5)
  - Aphagia [None]
  - Weight decreased [None]
  - Decreased appetite [None]
  - Abdominal pain upper [None]
  - Vomiting [None]
